FAERS Safety Report 6707438-8 (Version None)
Quarter: 2010Q2

REPORT INFORMATION
  Report Type: 
  Country: None (occurrence: None)
  Receive Date: 20100503
  Receipt Date: 20090917
  Transmission Date: 20101027
  Serious: No
  Sender: FDA-Public Use
  Company Number: US-ASTRAZENECA-2009SE13902

PATIENT
  Age: 77 Year
  Sex: Female

DRUGS (3)
  1. NEXIUM [Suspect]
     Indication: OESOPHAGITIS
     Route: 048
     Dates: start: 20040201
  2. NEXIUM [Suspect]
     Indication: GASTRITIS
     Route: 048
     Dates: start: 20040201
  3. VALIUM [Concomitant]
     Indication: VESTIBULAR DISORDER

REACTIONS (6)
  - ABDOMINAL DISTENSION [None]
  - DYSPHONIA [None]
  - NAUSEA [None]
  - OESOPHAGEAL POLYP [None]
  - STRESS [None]
  - VESTIBULAR DISORDER [None]
